FAERS Safety Report 9223253 (Version 3)
Quarter: 2013Q2

REPORT INFORMATION
  Report Type: Spontaneous
  Country: US (occurrence: US)
  Receive Date: 20130410
  Receipt Date: 20130624
  Transmission Date: 20140414
  Serious: Yes (Hospitalization, Other)
  Sender: FDA-Public Use
  Company Number: US-TARO-2013P1004215

PATIENT
  Age: 60 Year
  Sex: Male
  Weight: 87.36 kg

DRUGS (13)
  1. WARFARIN [Suspect]
     Dates: start: 200810
  2. JANUVIA [Concomitant]
  3. METOPROLOL [Concomitant]
  4. ALTACE [Concomitant]
  5. TRICOR [Concomitant]
  6. LIPITOR [Concomitant]
  7. METFORMIN [Concomitant]
  8. ASPIRIN 325 MG [Concomitant]
  9. FISH OIL [Concomitant]
  10. NIASPAN [Concomitant]
  11. CINNAMON [Concomitant]
  12. GLYBURIDE [Concomitant]
  13. CENTRUM SILVER [Concomitant]

REACTIONS (25)
  - International normalised ratio increased [Recovering/Resolving]
  - Pulmonary oedema [Not Recovered/Not Resolved]
  - Haemoptysis [Unknown]
  - Oedema peripheral [Not Recovered/Not Resolved]
  - Exercise tolerance decreased [Not Recovered/Not Resolved]
  - Type 2 diabetes mellitus [Not Recovered/Not Resolved]
  - Hypertension [Unknown]
  - Prothrombin time prolonged [Not Recovered/Not Resolved]
  - Dyslipidaemia [Unknown]
  - Polycythaemia [Unknown]
  - Abdominal discomfort [Unknown]
  - Purpura [Not Recovered/Not Resolved]
  - Pharyngeal erythema [Not Recovered/Not Resolved]
  - Alopecia [Not Recovered/Not Resolved]
  - Pleural effusion [Not Recovered/Not Resolved]
  - Renal failure acute [Not Recovered/Not Resolved]
  - Blood potassium increased [Unknown]
  - Nephrotic syndrome [Not Recovered/Not Resolved]
  - Pneumonia [Not Recovered/Not Resolved]
  - Arteriosclerosis coronary artery [Not Recovered/Not Resolved]
  - Ejection fraction decreased [Not Recovered/Not Resolved]
  - Anaemia [Not Recovered/Not Resolved]
  - Cardiac failure congestive [Not Recovered/Not Resolved]
  - Arrhythmia [Unknown]
  - Weight increased [Unknown]
